FAERS Safety Report 6108353-3 (Version None)
Quarter: 2009Q1

REPORT INFORMATION
  Report Type: 
  Country: None (occurrence: None)
  Receive Date: 20090309
  Receipt Date: 20090225
  Transmission Date: 20090719
  Serious: Yes (Other)
  Sender: FDA-Public Use
  Company Number: GB-PFIZER INC-2009178495

PATIENT

DRUGS (2)
  1. CHAMPIX [Suspect]
     Route: 048
     Dates: start: 20090217, end: 20090224
  2. OTHER RESPIRATORY SYSTEM PRODUCTS [Concomitant]

REACTIONS (1)
  - RECTAL HAEMORRHAGE [None]
